FAERS Safety Report 7010498 (Version 4)
Quarter: 2013Q1

REPORT INFORMATION
  Report Type: Spontaneous
  Country: US (occurrence: US)
  Receive Date: 20090604
  Receipt Date: 20130211
  Transmission Date: 20140127
  Serious: Yes (Hospitalization, Other)
  Sender: FDA-Public Use
  Company Number: US-ASTRAZENECA-2009UW13906

PATIENT
  Age: 60 Year
  Sex: Male
  Weight: 88.5 kg

DRUGS (10)
  1. SEROQUEL [Suspect]
     Indication: BIPOLAR DISORDER
     Route: 048
     Dates: start: 2004, end: 2009
  2. SEROQUEL [Suspect]
     Indication: BIPOLAR DISORDER
     Route: 048
     Dates: start: 2009
  3. SEROQUEL [Suspect]
     Indication: BIPOLAR DISORDER
     Dosage: GENERIC COUNTER PART
     Route: 048
  4. SEROQUEL [Suspect]
     Indication: BIPOLAR DISORDER
     Route: 048
  5. SIMVASTATIN [Concomitant]
  6. TEGRETOL [Concomitant]
  7. BENICAR [Concomitant]
  8. CHOLESTEROL DRUG [Concomitant]
  9. BLOOD PRESSURE MEDICINE [Concomitant]
  10. ANTIDEPRESSANTS [Concomitant]

REACTIONS (12)
  - Suicidal ideation [Unknown]
  - Adverse event [Recovered/Resolved]
  - Thinking abnormal [Unknown]
  - Malaise [Unknown]
  - Insomnia [Unknown]
  - Fall [Unknown]
  - Panic attack [Unknown]
  - Dizziness [Recovered/Resolved]
  - Dysarthria [Unknown]
  - Therapeutic response unexpected [Unknown]
  - Drug effect incomplete [Unknown]
  - Drug dose omission [Unknown]
